FAERS Safety Report 4355780-0 (Version None)
Quarter: 2004Q2

REPORT INFORMATION
  Report Type: 
  Country: None (occurrence: None)
  Receive Date: 20040505
  Receipt Date: 20040427
  Transmission Date: 20050107
  Serious: Yes (Other)
  Sender: FDA-Public Use
  Company Number: USA-2004-0014869

PATIENT
  Sex: Male

DRUGS (1)
  1. SPECTRACEF [Suspect]

REACTIONS (2)
  - CLOSTRIDIUM COLITIS [None]
  - RENAL FAILURE [None]
